FAERS Safety Report 9229515 (Version 2)
Quarter: 2013Q2

REPORT INFORMATION
  Report Type: Spontaneous
  Country: US (occurrence: US)
  Receive Date: 20130412
  Receipt Date: 20130604
  Transmission Date: 20140414
  Serious: No
  Sender: FDA-Public Use
  Company Number: US-009507513-1304USA001124

PATIENT
  Sex: Female

DRUGS (1)
  1. IMPLANON [Suspect]
     Indication: CONTRACEPTION
     Dosage: 1 DF, UNK
     Dates: start: 201204, end: 20130401

REACTIONS (5)
  - Encapsulation reaction [Recovering/Resolving]
  - Pain [Recovered/Resolved]
  - Device breakage [Recovered/Resolved]
  - Complication of device insertion [Unknown]
  - Device dislocation [Recovered/Resolved]
